FAERS Safety Report 4630234-2 (Version None)
Quarter: 2005Q2

REPORT INFORMATION
  Report Type: 
  Country: None (occurrence: None)
  Receive Date: 20050406
  Receipt Date: 20050318
  Transmission Date: 20051028
  Serious: Yes (Other)
  Sender: FDA-Public Use
  Company Number: EWC050343285

PATIENT
  Age: 54 Year
  Sex: Female

DRUGS (3)
  1. ZYPREXA [Suspect]
     Indication: SCHIZOAFFECTIVE DISORDER
     Dosage: 15 MG DAY
     Dates: start: 20041101
  2. DELORAZEPAM [Concomitant]
  3. VALPROIC ACID [Concomitant]

REACTIONS (2)
  - BREAST CANCER [None]
  - HYPERPROLACTINAEMIA [None]
